FAERS Safety Report 5073020-4 (Version None)
Quarter: 2006Q3

REPORT INFORMATION
  Report Type: 
  Country: None (occurrence: None)
  Receive Date: 20060802
  Receipt Date: 20060726
  Transmission Date: 20061208
  Serious: Yes (Hospitalization)
  Sender: FDA-Public Use
  Company Number: 2006091494

PATIENT
  Age: 31 Year
  Sex: Male

DRUGS (2)
  1. SALAZOPYRIN TABS (SULFASALAZINE) [Suspect]
     Indication: COLITIS ULCERATIVE
     Dosage: 4 GRAM (DAILY), ORAL
     Route: 048
     Dates: start: 20051013, end: 20051103
  2. PREDNISOLONE [Concomitant]

REACTIONS (1)
  - DRUG HYPERSENSITIVITY [None]
